FAERS Safety Report 10862490 (Version 1)
Quarter: 2015Q1

REPORT INFORMATION
  Report Type: Spontaneous
  Country: US (occurrence: None)
  Receive Date: 20150219
  Receipt Date: 20150219
  Transmission Date: 20150721
  Serious: No
  Sender: FDA-Public Use
  Company Number: None

PATIENT
  Age: 69 Year
  Sex: Female

DRUGS (12)
  1. K-TAB [Concomitant]
     Active Substance: POTASSIUM CHLORIDE
  2. ZETIA [Concomitant]
     Active Substance: EZETIMIBE
  3. CYMBALTA [Concomitant]
     Active Substance: DULOXETINE HYDROCHLORIDE
  4. CALCIUM CITRATE-VIT D3 [Concomitant]
  5. NORVASC [Concomitant]
     Active Substance: AMLODIPINE BESYLATE
  6. VALIUM [Concomitant]
     Active Substance: DIAZEPAM
  7. PEPCID [Concomitant]
     Active Substance: FAMOTIDINE
  8. LISINOPRIL. [Concomitant]
     Active Substance: LISINOPRIL
  9. NEURONTIN [Concomitant]
     Active Substance: GABAPENTIN
  10. AMPYRA [Suspect]
     Active Substance: DALFAMPRIDINE
     Indication: MULTIPLE SCLEROSIS
     Route: 048
     Dates: start: 201106
  11. TEMAZEPAM. [Concomitant]
     Active Substance: TEMAZEPAM
  12. FOSAMAX [Concomitant]
     Active Substance: ALENDRONATE SODIUM

REACTIONS (1)
  - Urinary tract infection [None]

NARRATIVE: CASE EVENT DATE: 20140812
